FAERS Safety Report 5767424-1 (Version None)
Quarter: 2008Q2

REPORT INFORMATION
  Report Type: 
  Country: None (occurrence: None)
  Receive Date: 20080612
  Receipt Date: 20080605
  Transmission Date: 20081010
  Serious: Yes (Hospitalization)
  Sender: FDA-Public Use
  Company Number: AU-BRISTOL-MYERS SQUIBB COMPANY-14205744

PATIENT
  Age: 68 Year
  Sex: Male
  Weight: 72 kg

DRUGS (10)
  1. BLINDED: BRIVANIB ALANINATE [Suspect]
     Indication: COLORECTAL CANCER METASTATIC
     Route: 048
     Dates: start: 20080521
  2. CETUXIMAB [Suspect]
     Indication: COLORECTAL CANCER METASTATIC
     Dosage: 490MG 28-MAY-2008 CYCLE 2.
     Route: 042
     Dates: start: 20080521
  3. BLINDED: PLACEBO [Suspect]
     Indication: COLORECTAL CANCER METASTATIC
     Route: 048
     Dates: start: 20080521
  4. ACETAMINOPHEN [Concomitant]
     Indication: BACK PAIN
     Dates: start: 20080501
  5. PANADEINE [Concomitant]
     Indication: BACK PAIN
     Dates: start: 20080501
  6. CODEINE LINCTUS [Concomitant]
     Indication: COUGH
     Dates: start: 20080501
  7. MAALOX [Concomitant]
     Indication: NAUSEA
     Dates: start: 20071201
  8. BISOLVON [Concomitant]
     Indication: COUGH
     Dates: start: 20071201
  9. MULTI-VITAMIN [Concomitant]
     Dates: start: 20071201
  10. ZINC [Concomitant]
     Dates: start: 20071201

REACTIONS (12)
  - ASPARTATE AMINOTRANSFERASE INCREASED [None]
  - BLOOD ALBUMIN DECREASED [None]
  - BLOOD ALKALINE PHOSPHATASE INCREASED [None]
  - BLOOD CHLORIDE DECREASED [None]
  - BLOOD CREATININE DECREASED [None]
  - BLOOD SODIUM DECREASED [None]
  - CEREBRAL ISCHAEMIA [None]
  - DELIRIUM [None]
  - ESCHERICHIA URINARY TRACT INFECTION [None]
  - GAMMA-GLUTAMYLTRANSFERASE INCREASED [None]
  - MONOCYTE COUNT INCREASED [None]
  - PLATELET COUNT INCREASED [None]
